FAERS Safety Report 9105266 (Version 20)
Quarter: 2016Q4

REPORT INFORMATION
  Report Type: Spontaneous
  Country: US (occurrence: US)
  Receive Date: 20130220
  Receipt Date: 20161214
  Transmission Date: 20170207
  Serious: Yes (Hospitalization, Other)
  Sender: FDA-Public Use
  Company Number: US-GLAXOSMITHKLINE-A1011461A

PATIENT
  Age: 47 Year
  Sex: Female

DRUGS (27)
  1. FLOLAN [Suspect]
     Active Substance: EPOPROSTENOL SODIUM
     Indication: PULMONARY ARTERIAL HYPERTENSION
     Dosage: 23 NG/KG/MIN CONTINUOUSLYDOSE: 23.4 NG/KG/MIN, CONC: 30,000 NG/MLVIAL STRENGTH: 1.5 MG23.5 NG/K[...]
     Route: 042
     Dates: start: 20110923
  2. FLOLAN [Suspect]
     Active Substance: EPOPROSTENOL SODIUM
     Dosage: UNK
     Dates: start: 20110924
  3. FLOLAN [Suspect]
     Active Substance: EPOPROSTENOL SODIUM
     Dosage: UNK
     Dates: start: 20110924
  4. FLOLAN [Suspect]
     Active Substance: EPOPROSTENOL SODIUM
     Dosage: 24.7 NG/KG/MIN
     Route: 042
  5. UPTRAVI [Suspect]
     Active Substance: SELEXIPAG
     Dosage: 1400 UG, BID
  6. ADCIRCA [Concomitant]
     Active Substance: TADALAFIL
  7. FLOLAN [Suspect]
     Active Substance: EPOPROSTENOL SODIUM
     Dosage: 25.7 NG/KG/MIN CONTINUOUS; CONCENTRATION 30,000 NG/ML; PUMP RATE 79 ML/DAY; VIAL STRENGTH 1.5 MG/ML
     Dates: start: 20110923
  8. FLOLAN [Suspect]
     Active Substance: EPOPROSTENOL SODIUM
     Dosage: UNK
  9. FLOLAN [Suspect]
     Active Substance: EPOPROSTENOL SODIUM
     Dosage: 19.5 DF, CO
     Route: 042
  10. FLOLAN [Suspect]
     Active Substance: EPOPROSTENOL SODIUM
     Dosage: 4.9 NG/KG/MIN, CO
     Dates: start: 20110923
  11. FLOLAN [Suspect]
     Active Substance: EPOPROSTENOL SODIUM
     Dosage: UNK
  12. FLOLAN [Suspect]
     Active Substance: EPOPROSTENOL SODIUM
     Dosage: UNK
  13. FLOLAN [Suspect]
     Active Substance: EPOPROSTENOL SODIUM
     Dosage: UNK
     Dates: start: 20110924
  14. FLOLAN [Suspect]
     Active Substance: EPOPROSTENOL SODIUM
     Dosage: 26 NG/KG/MIN CONTINUOUS; CONCENTRATION 30,000 NG/ML; PUMP RATE 80 ML/DAY; VIAL STRENGTH 1.5 MG/ML
     Dates: start: 20110923
  15. UPTRAVI [Suspect]
     Active Substance: SELEXIPAG
     Indication: PRODUCT USED FOR UNKNOWN INDICATION
     Dosage: UNK
     Dates: start: 20160724
  16. REVATIO [Concomitant]
     Active Substance: SILDENAFIL CITRATE
     Route: 048
  17. FLOLAN [Suspect]
     Active Substance: EPOPROSTENOL SODIUM
     Dosage: 25 DF, CO
     Route: 042
     Dates: start: 20110923
  18. FLOLAN [Suspect]
     Active Substance: EPOPROSTENOL SODIUM
     Dosage: 2.31 DF, CO
  19. FLOLAN [Suspect]
     Active Substance: EPOPROSTENOL SODIUM
     Dosage: UNK
  20. FLOLAN [Suspect]
     Active Substance: EPOPROSTENOL SODIUM
     Dosage: UNK
  21. TRACLEER [Concomitant]
     Active Substance: BOSENTAN
     Route: 048
  22. FLOLAN [Suspect]
     Active Substance: EPOPROSTENOL SODIUM
     Dosage: 25 NG/KG/MIN
  23. FLOLAN [Suspect]
     Active Substance: EPOPROSTENOL SODIUM
     Dosage: UNK
     Dates: start: 20110924
  24. FLOLAN [Suspect]
     Active Substance: EPOPROSTENOL SODIUM
     Dosage: 23.5 NG/KG/MIN CONTINUOUS
  25. FLOLAN [Suspect]
     Active Substance: EPOPROSTENOL SODIUM
     Indication: PULMONARY ARTERIAL HYPERTENSION
     Dosage: UNK
  26. UPTRAVI [Suspect]
     Active Substance: SELEXIPAG
     Dosage: 1200 UG, BID
  27. OPSUMIT [Concomitant]
     Active Substance: MACITENTAN

REACTIONS (25)
  - Catheter site infection [Not Recovered/Not Resolved]
  - Palpitations [Unknown]
  - Device leakage [Unknown]
  - Complication associated with device [Unknown]
  - Chest pain [Unknown]
  - Pulmonary hypertension [Unknown]
  - Pulmonary arterial hypertension [Unknown]
  - Diarrhoea [Unknown]
  - Dyspnoea [Unknown]
  - Headache [Unknown]
  - Nausea [Unknown]
  - Pain [Unknown]
  - Localised infection [Unknown]
  - Flushing [Unknown]
  - Catheter site swelling [Not Recovered/Not Resolved]
  - Food poisoning [Unknown]
  - Catheter site erythema [Not Recovered/Not Resolved]
  - Catheter site pain [Not Recovered/Not Resolved]
  - Pyrexia [Unknown]
  - Feeling hot [Unknown]
  - Lower respiratory tract infection [Unknown]
  - Drug administration error [Unknown]
  - Upper respiratory tract infection [Unknown]
  - Device related infection [Recovered/Resolved]
  - Skin infection [Unknown]

NARRATIVE: CASE EVENT DATE: 20130123
